FAERS Safety Report 14164111 (Version 5)
Quarter: 2018Q1

REPORT INFORMATION
  Report Type: Spontaneous
  Country: DE (occurrence: DE)
  Receive Date: 20171107
  Receipt Date: 20180209
  Transmission Date: 20180508
  Serious: Yes (Life-Threatening, Hospitalization, Other)
  Sender: FDA-Public Use
  Company Number: DE-ROCHE-2020435

PATIENT
  Age: 76 Year
  Sex: Female
  Weight: 111 kg

DRUGS (14)
  1. LEVOTHYROXIN [Concomitant]
     Active Substance: LEVOTHYROXINE
     Route: 065
  2. ALLOPURINOL. [Concomitant]
     Active Substance: ALLOPURINOL
     Route: 065
  3. TAXOL [Suspect]
     Active Substance: PACLITAXEL
     Indication: PRODUCT USED FOR UNKNOWN INDICATION
     Route: 065
  4. HCTZ [Concomitant]
     Active Substance: HYDROCHLOROTHIAZIDE
     Route: 065
  5. VALSARTAN. [Concomitant]
     Active Substance: VALSARTAN
     Route: 065
  6. ELIQUIS [Concomitant]
     Active Substance: APIXABAN
     Route: 065
  7. NACL [Concomitant]
     Active Substance: SODIUM CHLORIDE
  8. SIMVASTATIN. [Concomitant]
     Active Substance: SIMVASTATIN
     Dosage: AT NIGHT
     Route: 065
  9. PERJETA [Suspect]
     Active Substance: PERTUZUMAB
     Indication: HER-2 POSITIVE BREAST CANCER
     Route: 042
     Dates: start: 20171009, end: 201712
  10. LANTUS [Concomitant]
     Active Substance: INSULIN GLARGINE
     Route: 065
  11. JANUVIA [Concomitant]
     Active Substance: SITAGLIPTIN PHOSPHATE
     Route: 065
  12. BISOPROLOL [Concomitant]
     Active Substance: BISOPROLOL
     Route: 065
  13. HUMAN INSULIN [Concomitant]
     Active Substance: INSULIN HUMAN
     Dosage: 12-18 IU?18-12-14 IU
     Route: 065
  14. HERCEPTIN [Suspect]
     Active Substance: TRASTUZUMAB
     Indication: HER-2 POSITIVE BREAST CANCER
     Route: 042
     Dates: start: 20171009, end: 201712

REACTIONS (18)
  - Vomiting [Recovered/Resolved]
  - Pleural effusion [Recovering/Resolving]
  - Chills [Recovered/Resolved]
  - Diarrhoea [Recovered/Resolved]
  - Respiratory distress [Recovered/Resolved]
  - Cardiovascular disorder [Recovering/Resolving]
  - Tetany [Recovered/Resolved]
  - Tremor [Recovered/Resolved]
  - Cyanosis central [Recovered/Resolved]
  - Pneumonia [Recovered/Resolved]
  - Acidosis [Unknown]
  - Pulmonary oedema [Recovered/Resolved]
  - Atrial fibrillation [Recovering/Resolving]
  - Dyspnoea [Recovered/Resolved]
  - Cardiac failure [Recovering/Resolving]
  - Cyanosis [Recovered/Resolved]
  - Blood test abnormal [Recovering/Resolving]
  - Prerenal failure [Unknown]

NARRATIVE: CASE EVENT DATE: 20171009
